FAERS Safety Report 6256158-5 (Version None)
Quarter: 2009Q3

REPORT INFORMATION
  Report Type: 
  Country: None (occurrence: None)
  Receive Date: 20090706
  Receipt Date: 20090623
  Transmission Date: 20100115
  Serious: Yes (Other)
  Sender: FDA-Public Use
  Company Number: PHHY2009US25073

PATIENT
  Age: 79 Year
  Sex: Male

DRUGS (2)
  1. CARBAMAZEPINE [Suspect]
     Indication: COMPLEX PARTIAL SEIZURES
     Dosage: UNK
  2. BUPIVACAINE [Concomitant]
     Indication: EPIDURAL ANAESTHESIA
     Dosage: 10 ML

REACTIONS (3)
  - CONVULSION [None]
  - DRUG DOSE OMISSION [None]
  - HYPOGLYCAEMIA [None]
